FAERS Safety Report 4870547-2 (Version None)
Quarter: 2005Q4

REPORT INFORMATION
  Report Type: 
  Country: None (occurrence: None)
  Receive Date: 20051228
  Receipt Date: 20051221
  Transmission Date: 20060501
  Serious: Yes (Other)
  Sender: FDA-Public Use
  Company Number: TRP_0676_2005

PATIENT
  Age: 43 Year
  Sex: Female

DRUGS (10)
  1. RIBASPHERE [Suspect]
     Indication: HEPATITIS C
     Dosage: DF PO
     Route: 048
     Dates: start: 20050702
  2. PEG-INTRON [Suspect]
     Indication: HEPATITIS C
     Dosage: DF SC
     Route: 058
     Dates: start: 20050702
  3. ABILIFY [Concomitant]
  4. PERCOCET [Concomitant]
  5. REQUIP [Concomitant]
  6. SOMA [Concomitant]
  7. TOPAMAX [Concomitant]
  8. TRAZODONE [Concomitant]
  9. XANAX [Concomitant]
  10. ORTHO TRI-CYCLEN [Concomitant]

REACTIONS (4)
  - BLOOD PRESSURE INCREASED [None]
  - CONVULSION [None]
  - HEADACHE [None]
  - NAUSEA [None]
